FAERS Safety Report 12685466 (Version 2)
Quarter: 2016Q3

REPORT INFORMATION
  Report Type: Spontaneous
  Country: US (occurrence: US)
  Receive Date: 20160825
  Receipt Date: 20160826
  Transmission Date: 20161109
  Serious: No
  Sender: FDA-Public Use
  Company Number: US-TEVA-682026ACC

PATIENT
  Age: 26 Year
  Sex: Female
  Weight: 62.65 kg

DRUGS (2)
  1. INSULIN [Concomitant]
     Active Substance: INSULIN NOS
     Indication: TYPE 1 DIABETES MELLITUS
  2. PLAN B ONE-STEP [Suspect]
     Active Substance: LEVONORGESTREL
     Indication: POST COITAL CONTRACEPTION
     Dates: start: 20160724, end: 20160724

REACTIONS (5)
  - Gastritis [Unknown]
  - Vaginal haemorrhage [Recovered/Resolved]
  - Adnexa uteri pain [Not Recovered/Not Resolved]
  - Gastrointestinal pain [Unknown]
  - Vomiting [Recovered/Resolved]

NARRATIVE: CASE EVENT DATE: 20160724
